FAERS Safety Report 11241922 (Version 1)
Quarter: 2015Q3

REPORT INFORMATION
  Report Type: Report from Study
  Country: US (occurrence: US)
  Receive Date: 20150706
  Receipt Date: 20150706
  Transmission Date: 20151125
  Serious: Yes (Hospitalization, Other)
  Sender: FDA-Public Use
  Company Number: US-ABBVIE-15P-163-1421441-00

PATIENT

DRUGS (3)
  1. LUPRON DEPOT [Suspect]
     Active Substance: LEUPROLIDE ACETATE
     Indication: ENDOMETRIOSIS
     Route: 050
     Dates: start: 20150605
  2. LUPRON DEPOT [Suspect]
     Active Substance: LEUPROLIDE ACETATE
     Indication: ENDOMETRIOSIS
     Dosage: FOUR INJECTIONS GIVEN
     Route: 050
     Dates: start: 2003
  3. LUPRON DEPOT [Suspect]
     Active Substance: LEUPROLIDE ACETATE
     Indication: MIGRAINE

REACTIONS (11)
  - Endometriosis [Not Recovered/Not Resolved]
  - Hot flush [Unknown]
  - Neoplasm [Unknown]
  - Pain [Unknown]
  - Exposure during pregnancy [Unknown]
  - Migraine [Not Recovered/Not Resolved]
  - Benign intracranial hypertension [Unknown]
  - Head discomfort [Unknown]
  - Migraine [Not Recovered/Not Resolved]
  - Migraine [Not Recovered/Not Resolved]
  - Drug ineffective [Not Recovered/Not Resolved]

NARRATIVE: CASE EVENT DATE: 2003
